FAERS Safety Report 22001550 (Version 2)
Quarter: 2023Q1

REPORT INFORMATION
  Report Type: Spontaneous
  Country: US (occurrence: US)
  Receive Date: 20230216
  Receipt Date: 20230227
  Transmission Date: 20230418
  Serious: Yes (Death)
  Sender: FDA-Public Use
  Company Number: US-TEVA-2023-US-2854710

PATIENT
  Age: 31 Year
  Sex: Male

DRUGS (3)
  1. FENTANYL [Suspect]
     Active Substance: FENTANYL
     Indication: Intentional product misuse
     Route: 065
  2. EPINEPHRINE [Suspect]
     Active Substance: EPINEPHRINE
     Indication: Drug use disorder
     Route: 065
  3. NALOXONE [Suspect]
     Active Substance: NALOXONE
     Indication: Drug use disorder
     Route: 065

REACTIONS (4)
  - Cardiac arrest [Fatal]
  - Drug use disorder [Fatal]
  - Intentional product misuse [Fatal]
  - Drug ineffective [Fatal]
